FAERS Safety Report 23123559 (Version 1)
Quarter: 2023Q4

REPORT INFORMATION
  Report Type: Spontaneous
  Country: CN (occurrence: CN)
  Receive Date: 20231030
  Receipt Date: 20231030
  Transmission Date: 20240110
  Serious: Yes (Other)
  Sender: FDA-Public Use
  Company Number: CN-ASTELLAS-2023US031894

PATIENT
  Age: 33 Year
  Sex: Female
  Weight: 48 kg

DRUGS (19)
  1. TACROLIMUS [Suspect]
     Active Substance: TACROLIMUS
     Indication: Renal transplant
     Dosage: UNK UNK, UNKNOWN FREQ.
     Route: 065
  2. TACROLIMUS [Suspect]
     Active Substance: TACROLIMUS
     Indication: Prophylaxis against transplant rejection
     Dosage: UNK UNK, UNKNOWN FREQ. (DOSE REDUCED)
     Route: 065
  3. TACROLIMUS [Suspect]
     Active Substance: TACROLIMUS
     Dosage: UNK UNK, UNKNOWN FREQ. (ADJUSTED)
     Route: 065
  4. MICAFUNGIN [Suspect]
     Active Substance: MICAFUNGIN SODIUM
     Indication: Antifungal prophylaxis
     Dosage: 100 MG, ONCE DAILY (D0?D14)
     Route: 065
  5. MICAFUNGIN [Suspect]
     Active Substance: MICAFUNGIN SODIUM
     Dosage: 150 MG, ONCE DAILY (D25?D29)
     Route: 065
  6. BASILIXIMAB [Concomitant]
     Active Substance: BASILIXIMAB
     Indication: Renal transplant
     Dosage: UNK UNK, UNKNOWN FREQ.
     Route: 065
  7. METHYLPREDNISOLONE [Concomitant]
     Active Substance: METHYLPREDNISOLONE
     Indication: Renal transplant
     Dosage: 20 MG, ONCE DAILY (PREOPERATIVELY)
     Route: 065
  8. METHYLPREDNISOLONE [Concomitant]
     Active Substance: METHYLPREDNISOLONE
     Indication: Prophylaxis against transplant rejection
     Dosage: 1000 MG, ONCE DAILY (INTRAOPERATIVELY)
     Route: 065
  9. METHYLPREDNISOLONE [Concomitant]
     Active Substance: METHYLPREDNISOLONE
     Dosage: 500 MG, ONCE DAILY (3RD DAY OF OPERATION)
     Route: 065
  10. METHYLPREDNISOLONE [Concomitant]
     Active Substance: METHYLPREDNISOLONE
     Dosage: 20 MG, ONCE DAILY (4TH DAY POSTOPERATIVELY)
     Route: 065
  11. METHYLPREDNISOLONE [Concomitant]
     Active Substance: METHYLPREDNISOLONE
     Dosage: UNK UNK, ONCE DAILY (REDUCED BY 5 MG EVERY DAY UNTIL 10 MG/D)
     Route: 065
  12. METHYLPREDNISOLONE [Concomitant]
     Active Substance: METHYLPREDNISOLONE
     Dosage: UNK UNK, UNKNOWN FREQ. (DOSE REDUCED)
     Route: 065
  13. MYCOPHENOLATE MOFETIL [Concomitant]
     Active Substance: MYCOPHENOLATE MOFETIL
     Indication: Renal transplant
     Dosage: UNK UNK, UNKNOWN FREQ.
     Route: 065
  14. MYCOPHENOLATE MOFETIL [Concomitant]
     Active Substance: MYCOPHENOLATE MOFETIL
     Indication: Prophylaxis against transplant rejection
     Dosage: UNK UNK, UNKNOWN FREQ. (DOSE REDUCED)
     Route: 065
  15. CEFOPERAZONE SODIUM\SULBACTAM SODIUM [Concomitant]
     Active Substance: CEFOPERAZONE SODIUM\SULBACTAM SODIUM
     Indication: Antifungal prophylaxis
     Dosage: 3 G, EVERY 12 HOURS (D0?D3)
     Route: 065
  16. LINEZOLID [Concomitant]
     Active Substance: LINEZOLID
     Indication: Antifungal prophylaxis
     Dosage: 600 MG, EVERY 12 HOURS (D1?D8)
     Route: 065
  17. MEROPENEM [Concomitant]
     Active Substance: MEROPENEM
     Indication: Antifungal prophylaxis
     Dosage: 500 MG, EVERY 8 HOURS (D3?D12)
     Route: 065
  18. MEROPENEM [Concomitant]
     Active Substance: MEROPENEM
     Dosage: 500 MG, EVERY 8 HOURS (D23?D29)
     Route: 065
  19. MEROPENEM [Concomitant]
     Active Substance: MEROPENEM
     Dosage: 1000 MG, EVERY 6 HOURS (D29?D40)
     Route: 065

REACTIONS (5)
  - Pathogen resistance [Recovered/Resolved]
  - Escherichia infection [Recovered/Resolved]
  - Klebsiella infection [Recovered/Resolved]
  - Abdominal abscess [Recovered/Resolved]
  - Off label use [Unknown]
